FAERS Safety Report 19123832 (Version 8)
Quarter: 2022Q1

REPORT INFORMATION
  Report Type: Spontaneous
  Country: CZ (occurrence: CZ)
  Receive Date: 20210412
  Receipt Date: 20220304
  Transmission Date: 20220423
  Serious: Yes (Hospitalization, Other)
  Sender: FDA-Public Use
  Company Number: CZ-JNJFOC-20210419408

PATIENT
  Sex: Female

DRUGS (47)
  1. FENTANYL CITRATE [Suspect]
     Active Substance: FENTANYL CITRATE
     Indication: Product used for unknown indication
     Route: 065
  2. FENTANYL [Interacting]
     Active Substance: FENTANYL
     Indication: Pain
     Dosage: 25 MICROGRAM
     Route: 065
  3. FENTANYL [Interacting]
     Active Substance: FENTANYL
     Indication: Post herpetic neuralgia
  4. GUAIFENESIN [Suspect]
     Active Substance: GUAIFENESIN
     Indication: Product used for unknown indication
     Route: 065
  5. AMLODIPINE BESYLATE [Interacting]
     Active Substance: AMLODIPINE BESYLATE
     Indication: Hypertension
     Route: 065
  6. AMLODIPINE BESYLATE [Interacting]
     Active Substance: AMLODIPINE BESYLATE
     Route: 048
  7. RAMIPRIL [Suspect]
     Active Substance: RAMIPRIL
     Indication: Product used for unknown indication
     Route: 065
  8. DONEPEZIL HYDROCHLORIDE [Suspect]
     Active Substance: DONEPEZIL HYDROCHLORIDE
     Indication: Product used for unknown indication
     Route: 065
  9. FOLIC ACID [Interacting]
     Active Substance: FOLIC ACID
     Indication: Product used for unknown indication
     Route: 065
  10. FOLIC ACID [Interacting]
     Active Substance: FOLIC ACID
     Dosage: 1 DOSAGE FORM (DAYS)
     Route: 048
  11. APIXABAN [Interacting]
     Active Substance: APIXABAN
     Indication: Anticoagulant therapy
     Dosage: 5 MILLIGRAM (HOURS)
     Route: 048
  12. AMIODARONE [Interacting]
     Active Substance: AMIODARONE
     Indication: Atrial fibrillation
     Dosage: 200 MILLIGRAM (DAYS)
     Route: 048
  13. OMEPRAZOLE [Suspect]
     Active Substance: OMEPRAZOLE
     Indication: Product used for unknown indication
     Route: 065
  14. METOPROLOL [Interacting]
     Active Substance: METOPROLOL
     Indication: Hypertension
     Dosage: 25 MILLIGRAM (DAYS)
     Route: 048
  15. CHONDROITIN SULFATE (BOVINE) [Interacting]
     Active Substance: CHONDROITIN SULFATE (BOVINE)
     Indication: Rheumatoid arthritis
     Route: 065
  16. METHOTREXATE SODIUM [Interacting]
     Active Substance: METHOTREXATE SODIUM
     Indication: Rheumatoid arthritis
     Dosage: 10 MILLIGRAM (WEEKS)
     Route: 048
  17. PANTOPRAZOLE [Suspect]
     Active Substance: PANTOPRAZOLE
     Indication: Nausea
     Dosage: 20 MILLIGRAM (DAYS)
     Route: 065
  18. PANTOPRAZOLE [Suspect]
     Active Substance: PANTOPRAZOLE
     Route: 048
  19. TRAZODONE [Suspect]
     Active Substance: TRAZODONE HYDROCHLORIDE
     Indication: Product used for unknown indication
     Route: 065
  20. METAMIZOLE [Interacting]
     Active Substance: METAMIZOLE
     Indication: Post herpetic neuralgia
     Route: 065
  21. METAMIZOLE [Interacting]
     Active Substance: METAMIZOLE
     Indication: Hypertension
     Route: 048
  22. SODIUM CHONDROITIN SULFATE [Interacting]
     Active Substance: SODIUM CHONDROITIN SULFATE
     Indication: Product used for unknown indication
     Route: 048
  23. SODIUM PICOSULFATE [Interacting]
     Active Substance: SODIUM PICOSULFATE
     Indication: Constipation
     Route: 065
  24. MELOXICAM [Interacting]
     Active Substance: MELOXICAM
     Indication: Pain
     Dosage: 15 MILLIGRAM (WEEKS)
     Route: 065
  25. MELOXICAM [Interacting]
     Active Substance: MELOXICAM
     Dosage: 1 DOSAGE FORM (WEEKS)
     Route: 048
  26. CAPTOPRIL [Suspect]
     Active Substance: CAPTOPRIL
     Indication: Hypertension
     Route: 065
  27. ALPRAZOLAM [Suspect]
     Active Substance: ALPRAZOLAM
     Indication: Product used for unknown indication
     Route: 065
  28. PREDNISONE [Interacting]
     Active Substance: PREDNISONE
     Indication: Steroid therapy
     Route: 065
  29. PREDNISONE [Interacting]
     Active Substance: PREDNISONE
     Dosage: 5 MILLIGRAM (DAYS)
     Route: 048
  30. ROSUVASTATIN [Interacting]
     Active Substance: ROSUVASTATIN
     Indication: Product used for unknown indication
     Route: 065
  31. ROSUVASTATIN [Interacting]
     Active Substance: ROSUVASTATIN
     Route: 048
  32. LEVOTHYROXINE [Interacting]
     Active Substance: LEVOTHYROXINE
     Indication: Autoimmune thyroiditis
     Route: 065
  33. LEVOTHYROXINE [Interacting]
     Active Substance: LEVOTHYROXINE
     Dosage: 100 MICROGRAM (DAYS)
     Route: 048
  34. TELMISARTAN [Interacting]
     Active Substance: TELMISARTAN
     Indication: Hypertension
     Route: 048
  35. ACETAMINOPHEN [Interacting]
     Active Substance: ACETAMINOPHEN
     Indication: Pain
     Route: 048
  36. CALCIUM\CHOLECALCIFEROL [Suspect]
     Active Substance: CALCIUM\CHOLECALCIFEROL
     Indication: Calcium deficiency
     Route: 065
  37. CALCIUM\CHOLECALCIFEROL [Suspect]
     Active Substance: CALCIUM\CHOLECALCIFEROL
     Dosage: 1 DOSAGE FORM (DAYS)
     Route: 048
  38. MAGNESIUM ASPARTATE\POTASSIUM ASPARTATE [Suspect]
     Active Substance: MAGNESIUM ASPARTATE\POTASSIUM ASPARTATE
     Indication: Product used for unknown indication
     Route: 065
  39. NICOFURANOSE [Interacting]
     Active Substance: NICOFURANOSE
     Indication: Encephalopathy
     Route: 048
  40. IBUPROFEN [Interacting]
     Active Substance: IBUPROFEN
     Indication: Pain
     Route: 065
  41. OXAZEPAM [Interacting]
     Active Substance: OXAZEPAM
     Indication: Drug abuse
     Route: 065
  42. ZOLPIDEM [Suspect]
     Active Substance: ZOLPIDEM TARTRATE
     Indication: Drug abuse
     Route: 065
  43. PREGABALIN [Suspect]
     Active Substance: PREGABALIN
     Indication: Post herpetic neuralgia
     Route: 065
  44. PREGABALIN [Suspect]
     Active Substance: PREGABALIN
     Route: 048
  45. BISACODYL [Interacting]
     Active Substance: BISACODYL
     Indication: Constipation
     Dosage: 10-20 GTT IN THE EVENING
     Route: 065
  46. HYDROCHLOROTHIAZIDE\TELMISARTAN [Suspect]
     Active Substance: HYDROCHLOROTHIAZIDE\TELMISARTAN
     Indication: Product used for unknown indication
     Dosage: 80/12.5 MG
     Route: 048
  47. EUTHYROX [Suspect]
     Active Substance: LEVOTHYROXINE SODIUM
     Indication: Autoimmune thyroiditis
     Route: 048

REACTIONS (44)
  - Hypokalaemia [Recovered/Resolved]
  - Liver function test abnormal [Recovered/Resolved]
  - Oxygen saturation decreased [Recovered/Resolved]
  - Hyponatraemia [Recovered/Resolved]
  - Cognitive disorder [Recovered/Resolved]
  - Delirium [Recovered/Resolved]
  - Listless [Recovering/Resolving]
  - Loss of personal independence in daily activities [Recovered/Resolved]
  - Atrial fibrillation [Recovered/Resolved]
  - Drug interaction [Recovered/Resolved]
  - Fall [Recovering/Resolving]
  - Dehydration [Recovered/Resolved]
  - Encephalopathy [Recovering/Resolving]
  - Head discomfort [Recovered/Resolved]
  - Mobility decreased [Recovered/Resolved]
  - General physical health deterioration [Recovering/Resolving]
  - Discomfort [Recovered/Resolved]
  - Immobile [Recovered/Resolved]
  - Incorrect dose administered [Unknown]
  - Medication error [Recovered/Resolved]
  - Affect lability [Recovered/Resolved]
  - Reduced facial expression [Recovered/Resolved]
  - Urinary retention [Recovered/Resolved]
  - Vertigo [Recovered/Resolved]
  - Confusional state [Recovered/Resolved]
  - Contusion [Recovered/Resolved]
  - Hypoacusis [Recovered/Resolved]
  - Fracture [Recovered/Resolved]
  - Mood swings [Recovered/Resolved]
  - Restlessness [Recovered/Resolved]
  - Head discomfort [Recovered/Resolved]
  - Pelvic fracture [Recovered/Resolved]
  - Bedridden [Recovered/Resolved]
  - Poor quality sleep [Recovering/Resolving]
  - Anxiety [Recovered/Resolved]
  - Apathy [Recovered/Resolved]
  - Hypertension [Recovering/Resolving]
  - Overdose [Recovered/Resolved]
  - Condition aggravated [Recovered/Resolved]
  - Nausea [Recovered/Resolved]
  - Dizziness [Recovered/Resolved]
  - Foreign body [Recovered/Resolved]
  - Prescription drug used without a prescription [Unknown]
  - Sleep disorder [Recovering/Resolving]

NARRATIVE: CASE EVENT DATE: 20180101
